FAERS Safety Report 11227752 (Version 1)
Quarter: 2015Q2

REPORT INFORMATION
  Report Type: Spontaneous
  Country: US (occurrence: None)
  Receive Date: 20150629
  Receipt Date: 20150629
  Transmission Date: 20150821
  Serious: Yes (Death, Hospitalization)
  Sender: FDA-Public Use
  Company Number: None

PATIENT
  Age: 17 Year
  Sex: Male
  Weight: 78.4 kg

DRUGS (1)
  1. BUSULFAN [Suspect]
     Active Substance: BUSULFAN
     Dates: end: 20150623

REACTIONS (10)
  - Pulmonary haemorrhage [None]
  - Respiratory distress [None]
  - Dialysis [None]
  - Immunosuppression [None]
  - Respiratory failure [None]
  - Renal failure [None]
  - Hepatic failure [None]
  - Hypoxia [None]
  - Bronchopulmonary aspergillosis [None]
  - Cardiac arrest [None]

NARRATIVE: CASE EVENT DATE: 20150430
